FAERS Safety Report 17999951 (Version 1)
Quarter: 2020Q3

REPORT INFORMATION
  Report Type: Report from Study
  Country: CO (occurrence: CO)
  Receive Date: 20200709
  Receipt Date: 20200709
  Transmission Date: 20201104
  Serious: Yes (Other)
  Sender: FDA-Public Use
  Company Number: PHHY2018CO065998

PATIENT
  Age: 7 Year
  Sex: Female
  Weight: 32 kg

DRUGS (5)
  1. MONTELUKAST SODIUM. [Suspect]
     Active Substance: MONTELUKAST SODIUM
     Indication: HYPERSENSITIVITY
     Dosage: 5 MG, UNK
     Route: 065
  2. FLUTICASONE. [Concomitant]
     Active Substance: FLUTICASONE
     Indication: HYPERSENSITIVITY
     Dosage: BOTH NASAL AND BUCCAL
     Route: 065
  3. BECLOMETHASONE [Concomitant]
     Active Substance: BECLOMETHASONE
     Indication: HYPERSENSITIVITY
     Route: 065
  4. XOLAIR [Suspect]
     Active Substance: OMALIZUMAB
     Indication: ASTHMA
     Dosage: 300 MG, QMO
     Route: 058
     Dates: start: 20180731
  5. SALBUTAMOL [Concomitant]
     Active Substance: ALBUTEROL
     Indication: HYPERSENSITIVITY
     Route: 065

REACTIONS (13)
  - Pyrexia [Recovering/Resolving]
  - Eye inflammation [Not Recovered/Not Resolved]
  - Eye irritation [Not Recovered/Not Resolved]
  - Cough [Not Recovered/Not Resolved]
  - Rhinitis [Not Recovered/Not Resolved]
  - Rash [Not Recovered/Not Resolved]
  - General physical health deterioration [Not Recovered/Not Resolved]
  - Vomiting [Recovering/Resolving]
  - Oxygen saturation decreased [Not Recovered/Not Resolved]
  - Choking [Recovering/Resolving]
  - Asthmatic crisis [Recovered/Resolved]
  - Bronchospasm [Not Recovered/Not Resolved]
  - Bronchial obstruction [Recovering/Resolving]

NARRATIVE: CASE EVENT DATE: 20180731
